FAERS Safety Report 21660939 (Version 2)
Quarter: 2022Q4

REPORT INFORMATION
  Report Type: Spontaneous
  Country: BR (occurrence: BR)
  Receive Date: 20221130
  Receipt Date: 20221212
  Transmission Date: 20230112
  Serious: Yes (Other)
  Sender: FDA-Public Use
  Company Number: BR-SUNPHARMA-2022R1-364343AA

PATIENT
  Age: 29 Year
  Sex: Female
  Weight: 53 kg

DRUGS (2)
  1. BENZOYL PEROXIDE\CLINDAMYCIN [Suspect]
     Active Substance: BENZOYL PEROXIDE\CLINDAMYCIN
     Indication: Product used for unknown indication
     Dosage: 5 % 45 MG
     Route: 065
  2. ADOLESS [Concomitant]
     Indication: Contraception
     Dosage: UNK
     Route: 065

REACTIONS (5)
  - Hypersensitivity [Recovered/Resolved]
  - Application site burn [Recovered/Resolved]
  - Swelling face [Recovered/Resolved]
  - Erythema [Recovered/Resolved]
  - Dry skin [Recovered/Resolved]

NARRATIVE: CASE EVENT DATE: 20221006
